FAERS Safety Report 8581282-1 (Version None)
Quarter: 2012Q3

REPORT INFORMATION
  Report Type: 
  Country: None (occurrence: None)
  Receive Date: 20120809
  Receipt Date: 20120731
  Transmission Date: 20120928
  Serious: Yes (Hospitalization)
  Sender: FDA-Public Use
  Company Number: US-BAYER-2012-079015

PATIENT
  Age: 50 Year
  Sex: Female

DRUGS (10)
  1. DEMEROL [Concomitant]
     Indication: PREMEDICATION
     Dosage: 100 MG, UNK
     Route: 042
     Dates: start: 20090403
  2. TRICOR [Concomitant]
     Indication: HYPERLIPIDAEMIA
     Dosage: 145 MG, 1 TIME PER DAY.
     Route: 048
     Dates: start: 20090408, end: 20090607
  3. TYLENOL [Concomitant]
  4. YAZ [Suspect]
  5. LEXAPRO [Concomitant]
     Indication: DEPRESSION
     Dosage: 10 MG, UNK
     Dates: start: 20041207, end: 20120611
  6. VERSED [Concomitant]
     Indication: PREMEDICATION
     Dosage: 5 MG, UNK
     Route: 042
     Dates: start: 20090403
  7. YASMIN [Suspect]
  8. DROSPIRENONE AND ETHINYL ESTRADIOL [Suspect]
  9. MACROBID [Concomitant]
     Indication: DYSURIA
     Dosage: 100 MG, BID FOR 7 DAYS
     Route: 048
     Dates: start: 20090120
  10. DOCUSATE SODIUM [Concomitant]

REACTIONS (2)
  - DEEP VEIN THROMBOSIS [None]
  - PULMONARY EMBOLISM [None]
